FAERS Safety Report 24553369 (Version 1)
Quarter: 2024Q4

REPORT INFORMATION
  Report Type: Report from Study
  Country: US (occurrence: US)
  Receive Date: 20241028
  Receipt Date: 20241028
  Transmission Date: 20250115
  Serious: No
  Sender: ROCHE
  Company Number: US-ROCHE-2205672

PATIENT
  Age: 54 Year
  Sex: Male
  Weight: 102.06 kg

DRUGS (14)
  1. NUTROPIN AQ [Suspect]
     Active Substance: SOMATROPIN
     Indication: Growth hormone deficiency
     Route: 058
  2. NUTROPIN AQ [Suspect]
     Active Substance: SOMATROPIN
     Indication: Hypopituitarism
  3. CLONAZEPAM [Suspect]
     Active Substance: CLONAZEPAM
     Indication: Product used for unknown indication
     Dosage: EVERY DAY, FOR 30 DAYS
     Route: 048
  4. HYDROXYZINE PAMOATE [Concomitant]
     Active Substance: HYDROXYZINE PAMOATE
     Dosage: EVERY DAY, FOR 30 DAYS
     Route: 048
  5. MIRTAZAPINE [Concomitant]
     Active Substance: MIRTAZAPINE
     Dosage: FOR 30 DAYS
     Route: 048
  6. MONTELUKAST [Concomitant]
     Active Substance: MONTELUKAST
     Dosage: FOR 90 DAYS
     Route: 048
  7. NORCO [Concomitant]
     Active Substance: ACETAMINOPHEN\HYDROCODONE BITARTRATE
     Dosage: 10MG-325 MG, 1 TAB, WITH MEALS FOR 30 DAYS
     Route: 048
  8. OMEPRAZOLE [Concomitant]
     Active Substance: OMEPRAZOLE
     Dosage: EVERY DAY, FOR 90DAYS
     Route: 048
  9. SIMVASTATIN [Concomitant]
     Active Substance: SIMVASTATIN
     Dosage: EVERY DAY, FOR 30 DAYS
     Route: 048
  10. TESTOSTERONE CYPIONATE [Concomitant]
     Active Substance: TESTOSTERONE CYPIONATE
     Dosage: 200 MG/ML
  11. TIZANIDINE [Concomitant]
     Active Substance: TIZANIDINE
     Dosage: WITH MEALS FOR 90 DAYS
     Route: 048
  12. TRAZODONE [Concomitant]
     Active Substance: TRAZODONE HYDROCHLORIDE
     Dosage: 1 TAB, FOR 30 DAYS
     Route: 048
  13. VOLTAREN [Concomitant]
     Active Substance: DICLOFENAC SODIUM
     Dosage: 1 %
  14. NEURONTIN [Concomitant]
     Active Substance: GABAPENTIN

REACTIONS (7)
  - Weight increased [Unknown]
  - Fatigue [Not Recovered/Not Resolved]
  - Hypoacusis [Unknown]
  - Dyspepsia [Unknown]
  - Ill-defined disorder [Unknown]
  - Emotional distress [Unknown]
  - Crying [Unknown]
